FAERS Safety Report 7383857-4 (Version None)
Quarter: 2011Q1

REPORT INFORMATION
  Report Type: 
  Country: None (occurrence: None)
  Receive Date: 20110330
  Receipt Date: 20110325
  Transmission Date: 20110831
  Serious: Yes (Other)
  Sender: FDA-Public Use
  Company Number: US-CEPHALON-2011001440

PATIENT

DRUGS (1)
  1. TRISENOX [Suspect]
     Route: 041

REACTIONS (1)
  - MYOCARDIAL INFARCTION [None]
